FAERS Safety Report 17197599 (Version 2)
Quarter: 2020Q1

REPORT INFORMATION
  Report Type: Spontaneous
  Country: RO (occurrence: RO)
  Receive Date: 20191224
  Receipt Date: 20200127
  Transmission Date: 20200409
  Serious: No
  Sender: FDA-Public Use
  Company Number: RO-SHIRE-RO201944649

PATIENT

DRUGS (22)
  1. NOVOSEVEN [Concomitant]
     Active Substance: COAGULATION FACTOR VIIA RECOMBINANT HUMAN
     Indication: PRODUCT USED FOR UNKNOWN INDICATION
  2. VANCOMYCIN [Concomitant]
     Active Substance: VANCOMYCIN
     Indication: PNEUMONIA PNEUMOCOCCAL
  3. CHLORAMPHENICOL [Concomitant]
     Active Substance: CHLORAMPHENICOL
     Indication: PNEUMONIA PNEUMOCOCCAL
  4. MEROPENEM. [Concomitant]
     Active Substance: MEROPENEM
     Indication: PNEUMOCOCCAL SEPSIS
     Dosage: UNK
  5. ERYTHROMYCIN. [Concomitant]
     Active Substance: ERYTHROMYCIN
     Indication: PNEUMONIA PNEUMOCOCCAL
  6. TRIMETHOPRIM SULFAMETHOXAZOLE [Concomitant]
     Active Substance: SULFAMETHOXAZOLE\TRIMETHOPRIM
     Indication: PNEUMONIA PNEUMOCOCCAL
  7. OFLOXACIN. [Concomitant]
     Active Substance: OFLOXACIN
     Indication: PNEUMONIA PNEUMOCOCCAL
  8. AMOXCILLIN [Concomitant]
     Active Substance: AMOXICILLIN
     Indication: PNEUMONIA PNEUMOCOCCAL
  9. TELITHROMYCIN [Concomitant]
     Active Substance: TELITHROMYCIN
     Indication: PNEUMONIA PNEUMOCOCCAL
  10. ETOPOSIDE. [Suspect]
     Active Substance: ETOPOSIDE
     Indication: HAEMOPHAGOCYTIC LYMPHOHISTIOCYTOSIS
     Dosage: 150 MILLIGRAM/SQ. METER, QD
     Route: 065
  11. HUMAN NORMAL IMMUNOGLOBULIN [Suspect]
     Active Substance: HUMAN IMMUNOGLOBULIN G
     Indication: HAEMOPHAGOCYTIC LYMPHOHISTIOCYTOSIS
     Dosage: UNK
     Route: 042
  12. DEXAMETHASONE. [Suspect]
     Active Substance: DEXAMETHASONE
     Indication: HAEMOPHAGOCYTIC LYMPHOHISTIOCYTOSIS
     Route: 065
  13. MER [Concomitant]
     Indication: PRODUCT USED FOR UNKNOWN INDICATION
  14. CEFTRIAXONE. [Concomitant]
     Active Substance: CEFTRIAXONE
     Indication: PNEUMONIA PNEUMOCOCCAL
  15. DALFOPRISTIN;QUINUPRISTIN [Concomitant]
     Indication: PNEUMONIA PNEUMOCOCCAL
  16. MOXIFLOXACIN. [Concomitant]
     Active Substance: MOXIFLOXACIN
     Indication: PNEUMOCOCCAL SEPSIS
     Dosage: UNK
  17. IMIPENEM [Concomitant]
     Active Substance: IMIPENEM
     Indication: PNEUMONIA PNEUMOCOCCAL
  18. LINEZOLID. [Concomitant]
     Active Substance: LINEZOLID
     Indication: PNEUMOCOCCAL SEPSIS
     Dosage: UNK
  19. BENZYLPENICILLIN [Concomitant]
     Active Substance: PENICILLIN G
     Indication: PNEUMONIA PNEUMOCOCCAL
  20. RIFAMPICIN [Concomitant]
     Active Substance: RIFAMPIN
     Indication: PNEUMONIA PNEUMOCOCCAL
  21. SPARFLOXACIN [Concomitant]
     Active Substance: SPARFLOXACIN
     Indication: PNEUMONIA PNEUMOCOCCAL
  22. PRISTINAMYCIN [Concomitant]
     Active Substance: PRISTINAMYCIN
     Indication: PNEUMONIA PNEUMOCOCCAL

REACTIONS (2)
  - Intentional product use issue [Unknown]
  - Drug ineffective for unapproved indication [Unknown]
